FAERS Safety Report 5899381-1 (Version None)
Quarter: 2008Q3

REPORT INFORMATION
  Report Type: 
  Country: None (occurrence: None)
  Receive Date: 20080924
  Receipt Date: 20080912
  Transmission Date: 20090109
  Serious: Yes (Other)
  Sender: FDA-Public Use
  Company Number: PAR_01825_2007

PATIENT
  Sex: Male
  Weight: 74.8435 kg

DRUGS (7)
  1. CLONAZEPAM ODT [Suspect]
     Indication: ANXIETY
     Dosage: (1 MG TID ORAL)
     Route: 048
     Dates: start: 20071220
  2. CLONAZEPAM ODT [Suspect]
     Indication: PANIC ATTACK
     Dosage: (1 MG TID ORAL)
     Route: 048
     Dates: start: 20071220
  3. CLONAZEPAM ODT [Suspect]
     Indication: PANIC DISORDER
     Dosage: (1 MG TID ORAL)
     Route: 048
     Dates: start: 20071220
  4. NEXIUM [Concomitant]
  5. DIOVAN /01319601/ [Concomitant]
  6. LEXAPRO [Concomitant]
  7. NORTRIPTYLINE HCL [Concomitant]

REACTIONS (11)
  - ANXIETY [None]
  - CONDITION AGGRAVATED [None]
  - DRUG INEFFECTIVE [None]
  - DYSPNOEA [None]
  - FATIGUE [None]
  - PALPITATIONS [None]
  - PANIC ATTACK [None]
  - PHARMACEUTICAL PRODUCT COMPLAINT [None]
  - SOMNOLENCE [None]
  - THERAPEUTIC RESPONSE UNEXPECTED WITH DRUG SUBSTITUTION [None]
  - TREMOR [None]
